FAERS Safety Report 8465415-3 (Version None)
Quarter: 2012Q2

REPORT INFORMATION
  Report Type: 
  Country: None (occurrence: None)
  Receive Date: 20120323
  Receipt Date: 20111128
  Transmission Date: 20120825
  Serious: Yes (Other)
  Sender: FDA-Public Use
  Company Number: 163-21880-11093318

PATIENT
  Age: 63 Year
  Sex: Male
  Weight: 125.1928 kg

DRUGS (14)
  1. VERAMYST (FLUTICASONE FUROATE) [Concomitant]
  2. IMMUNE GLOBULIN (HUMAN) [Concomitant]
  3. REVLIMID [Suspect]
     Indication: MULTIPLE MYELOMA
     Dosage: 25 MG, DAILY X 21 DAYS, PO ; 15 MG, DAILY X 21 DAYS, PO
     Route: 048
     Dates: start: 20111001
  4. REVLIMID [Suspect]
     Indication: MULTIPLE MYELOMA
     Dosage: 25 MG, DAILY X 21 DAYS, PO ; 15 MG, DAILY X 21 DAYS, PO
     Route: 048
     Dates: start: 20070401
  5. ZOMETA [Concomitant]
  6. VITAMIN B12 [Concomitant]
  7. LORAZEPAM [Concomitant]
  8. BYSTOLIC [Concomitant]
  9. HYDRATION (OTHER THERAPEUTIC PRODUCTS) [Concomitant]
  10. HYDROCORTONE [Concomitant]
  11. ZETIA [Concomitant]
  12. ACIPHEX [Concomitant]
  13. ASPIRIN [Concomitant]
  14. FISH OIL (FISH OIL) [Concomitant]

REACTIONS (3)
  - RENAL FAILURE ACUTE [None]
  - BLOOD CREATININE INCREASED [None]
  - DIARRHOEA [None]
